FAERS Safety Report 9173641 (Version 1)
Quarter: 2013Q1

REPORT INFORMATION
  Report Type: Spontaneous
  Country: US (occurrence: None)
  Receive Date: 20130318
  Receipt Date: 20130318
  Transmission Date: 20140127
  Serious: Yes (Life-Threatening)
  Sender: FDA-Public Use
  Company Number: None

PATIENT
  Age: 57 Year
  Sex: Female
  Weight: 78.02 kg

DRUGS (2)
  1. BUPROPION [Suspect]
     Indication: DEPRESSION
     Dosage: ONCE Q DAY
     Dates: start: 20121201, end: 20130315
  2. BUPROPION [Suspect]
     Indication: SEASONAL AFFECTIVE DISORDER
     Dosage: ONCE Q DAY
     Dates: start: 20121201, end: 20130315

REACTIONS (6)
  - Product substitution issue [None]
  - Drug ineffective [None]
  - Depression [None]
  - Hypersomnia [None]
  - Impaired self-care [None]
  - Anhedonia [None]
